FAERS Safety Report 7348015-8 (Version None)
Quarter: 2011Q1

REPORT INFORMATION
  Report Type: 
  Country: None (occurrence: None)
  Receive Date: 20110311
  Receipt Date: 20110225
  Transmission Date: 20110831
  Serious: Yes (Hospitalization)
  Sender: FDA-Public Use
  Company Number: US-BAYER-2011-022060

PATIENT
  Sex: Female
  Weight: 108.84 kg

DRUGS (11)
  1. FLUCONAZOLE [Concomitant]
     Dosage: 150 MG, UNK
  2. SUCRALFATE [Concomitant]
     Dosage: 1 G, UNK
  3. OCELLA [Suspect]
     Indication: OVARIAN CYST
     Dosage: UNK
     Dates: start: 20080701, end: 20091201
  4. MULTI-VITAMIN [Concomitant]
     Dosage: UNK UNK, QD
  5. CALCIUM PYRUVATE [Concomitant]
  6. YASMIN [Suspect]
     Indication: MENSTRUAL CYCLE MANAGEMENT
  7. ANTIBIOTICS [Concomitant]
  8. AMOXICILLIN AND CLAVULANATE POTASSIUM [Concomitant]
     Dosage: 875-125MG
  9. YASMIN [Suspect]
     Indication: OVARIAN CYST
     Dosage: UNK
     Dates: start: 20040801, end: 20080601
  10. PREVPAC [Concomitant]
  11. OCELLA [Suspect]
     Indication: MENSTRUAL CYCLE MANAGEMENT

REACTIONS (6)
  - GALLBLADDER CHOLESTEROLOSIS [None]
  - BILIARY COLIC [None]
  - ABDOMINAL DISCOMFORT [None]
  - ABDOMINAL PAIN UPPER [None]
  - CHOLELITHIASIS [None]
  - CHOLECYSTITIS CHRONIC [None]
